FAERS Safety Report 8422236-5 (Version None)
Quarter: 2012Q2

REPORT INFORMATION
  Report Type: 
  Country: None (occurrence: None)
  Receive Date: 20120608
  Receipt Date: 20120529
  Transmission Date: 20120825
  Serious: No
  Sender: FDA-Public Use
  Company Number: US-ASTRAZENECA-2011SE26595

PATIENT
  Age: 67 Year
  Sex: Male

DRUGS (1)
  1. SEROQUEL [Suspect]
     Route: 048

REACTIONS (5)
  - DIABETES MELLITUS [None]
  - TREMOR [None]
  - DRUG DOSE OMISSION [None]
  - INSOMNIA [None]
  - DRUG HYPERSENSITIVITY [None]
